FAERS Safety Report 23443985 (Version 1)
Quarter: 2024Q1

REPORT INFORMATION
  Report Type: Spontaneous
  Country: US (occurrence: US)
  Receive Date: 20240125
  Receipt Date: 20240125
  Transmission Date: 20240410
  Serious: Yes (Hospitalization, Other)
  Sender: FDA-Public Use
  Company Number: US-TARO PHARMACEUTICALS USA INC.-2024TAR00090

PATIENT

DRUGS (3)
  1. WARFARIN [Interacting]
     Active Substance: WARFARIN
     Indication: Product used for unknown indication
     Dosage: UNK
     Route: 065
  2. XTANDI [Interacting]
     Active Substance: ENZALUTAMIDE
     Indication: Product used for unknown indication
     Dosage: 160 MG, DAILY
     Route: 065
  3. XTANDI [Interacting]
     Active Substance: ENZALUTAMIDE
     Dosage: 120 MG, DAILY

REACTIONS (4)
  - Drug interaction [Unknown]
  - International normalised ratio abnormal [Unknown]
  - Internal haemorrhage [Unknown]
  - Fatigue [Unknown]
